FAERS Safety Report 7434609-8 (Version None)
Quarter: 2011Q2

REPORT INFORMATION
  Report Type: 
  Country: None (occurrence: None)
  Receive Date: 20110421
  Receipt Date: 20110421
  Transmission Date: 20111010
  Serious: Yes (Death)
  Sender: FDA-Public Use
  Company Number: None

PATIENT
  Age: 57 Year
  Sex: Male
  Weight: 92.0802 kg

DRUGS (1)
  1. PRASUGREL 10MG DAICHI SANKYO/ LILLY [Suspect]
     Indication: IN-STENT ARTERIAL RESTENOSIS
     Dosage: 10MG QDAY PO
     Route: 048
     Dates: start: 20101112, end: 20110413

REACTIONS (5)
  - EJECTION FRACTION DECREASED [None]
  - CARDIAC ANEURYSM [None]
  - INTERNATIONAL NORMALISED RATIO INCREASED [None]
  - CEREBRAL HAEMORRHAGE [None]
  - INTRACARDIAC THROMBUS [None]
